FAERS Safety Report 14046001 (Version 3)
Quarter: 2018Q1

REPORT INFORMATION
  Report Type: Spontaneous
  Country: JP (occurrence: JP)
  Receive Date: 20171005
  Receipt Date: 20180214
  Transmission Date: 20180508
  Serious: Yes (Death, Life-Threatening, Hospitalization, Disabling, Other)
  Sender: FDA-Public Use
  Company Number: JP-009507513-1707JPN001069J

PATIENT
  Age: 58 Year
  Sex: Male
  Weight: 72 kg

DRUGS (16)
  1. MEIACT [Suspect]
     Active Substance: CEFDITOREN PIVOXIL
     Dosage: UNK
     Route: 048
  2. HUMALOG [Suspect]
     Active Substance: INSULIN LISPRO
     Dosage: UNK
     Route: 058
     Dates: start: 20170716, end: 20170720
  3. FEXOFENADINE HYDROCHLORIDE. [Suspect]
     Active Substance: FEXOFENADINE HYDROCHLORIDE
     Dosage: UNK
     Route: 048
  4. MIYA-BM [Suspect]
     Active Substance: CLOSTRIDIUM BUTYRICUM SPORES STRAIN M-55
     Dosage: UNK
     Route: 048
  5. INSULIN GLARGINE [Suspect]
     Active Substance: INSULIN GLARGINE
     Dosage: UNK
     Route: 058
     Dates: start: 20170716, end: 20170720
  6. GLIMEPIRIDE. [Suspect]
     Active Substance: GLIMEPIRIDE
     Indication: DIABETES MELLITUS
     Dosage: 0.5 MG, BID
     Route: 048
     Dates: end: 20170716
  7. TOSUFLOXACIN HYDROCHLORIDE [Suspect]
     Active Substance: TOSUFLOXACIN TOSYLATE
     Dosage: UNK
     Route: 048
  8. FEXOFENADINE HYDROCHLORIDE. [Suspect]
     Active Substance: FEXOFENADINE HYDROCHLORIDE
     Dosage: UNK
     Route: 048
  9. ACETAMINOPHEN. [Suspect]
     Active Substance: ACETAMINOPHEN
     Dosage: UNK
     Route: 048
  10. LOXONIN [Suspect]
     Active Substance: LOXOPROFEN SODIUM
     Dosage: UNK
     Route: 048
  11. METFORMIN HYDROCHLORIDE. [Suspect]
     Active Substance: METFORMIN HYDROCHLORIDE
     Indication: DIABETES MELLITUS
     Dosage: 500 MG, BID
     Route: 048
     Dates: end: 20170716
  12. TALION [Suspect]
     Active Substance: BEPOTASTINE
     Dosage: UNK
     Route: 048
  13. CABAGIN-U [Suspect]
     Active Substance: METHYLMETHIONINE SULFONIUM CHLORIDE
     Dosage: UNK
     Route: 048
  14. CUBICIN [Suspect]
     Active Substance: DAPTOMYCIN
     Indication: ENDOCARDITIS
     Dosage: 420 MG, UNK
     Route: 041
     Dates: start: 20170720, end: 20170720
  15. EQUA [Suspect]
     Active Substance: VILDAGLIPTIN
     Indication: DIABETES MELLITUS
     Dosage: 50 MG, BID
     Route: 048
     Dates: end: 20170716
  16. SULBACILLIN [Suspect]
     Active Substance: AMPICILLIN SODIUM\SULBACTAM SODIUM
     Dosage: 3.0 G, BID
     Route: 042
     Dates: start: 20170716, end: 20170720

REACTIONS (13)
  - Respiratory arrest [Unknown]
  - Bradycardia [Unknown]
  - Hyperkalaemia [Unknown]
  - Feeling abnormal [Unknown]
  - Blood pressure decreased [Unknown]
  - Cardiac valve rupture [Unknown]
  - Hypersensitivity [Unknown]
  - Condition aggravated [Unknown]
  - Endocarditis [Fatal]
  - Hepatic function abnormal [Unknown]
  - Cardiac arrest [Fatal]
  - Hypoxic-ischaemic encephalopathy [Unknown]
  - Renal impairment [Unknown]

NARRATIVE: CASE EVENT DATE: 2017
